FAERS Safety Report 22609932 (Version 1)
Quarter: 2023Q2

REPORT INFORMATION
  Report Type: Spontaneous
  Country: US (occurrence: US)
  Receive Date: 20230616
  Receipt Date: 20230616
  Transmission Date: 20230722
  Serious: No
  Sender: FDA-Public Use
  Company Number: US-SA-SAC20230315000701

PATIENT
  Age: 48 Year
  Sex: Female

DRUGS (1)
  1. DUPIXENT [Suspect]
     Active Substance: DUPILUMAB
     Indication: Product use in unapproved indication
     Dosage: 300 MG (FREQUENCY: OTHER)
     Route: 058
     Dates: start: 20230313

REACTIONS (3)
  - Toothache [Unknown]
  - Insomnia [Unknown]
  - Drug ineffective [Unknown]
